FAERS Safety Report 19537562 (Version 1)
Quarter: 2021Q3

REPORT INFORMATION
  Report Type: Spontaneous
  Country: US (occurrence: US)
  Receive Date: 20210713
  Receipt Date: 20210713
  Transmission Date: 20211014
  Serious: Yes (Hospitalization)
  Sender: FDA-Public Use
  Company Number: None

PATIENT
  Age: 13 Year
  Sex: Male

DRUGS (2)
  1. PULMOZYME [Suspect]
     Active Substance: DORNASE ALFA
     Indication: RESPIRATORY TRACT MALFORMATION
     Route: 055
     Dates: start: 20210413
  2. DOS CLH 7% [Concomitant]

REACTIONS (1)
  - Sinus operation [None]

NARRATIVE: CASE EVENT DATE: 20210625
